FAERS Safety Report 17201382 (Version 4)
Quarter: 2020Q1

REPORT INFORMATION
  Report Type: Spontaneous
  Country: ES (occurrence: ES)
  Receive Date: 20191226
  Receipt Date: 20200221
  Transmission Date: 20200409
  Serious: Yes (Life-Threatening, Hospitalization, Other)
  Sender: FDA-Public Use
  Company Number: ES-ASTRAZENECA-2019SF85617

PATIENT
  Age: 53 Year
  Sex: Male

DRUGS (1)
  1. FASENRA [Suspect]
     Active Substance: BENRALIZUMAB
     Indication: ASTHMA
     Dosage: 30.0MG ONCE/SINGLE ADMINISTRATION
     Route: 058
     Dates: start: 20191108, end: 20191108

REACTIONS (6)
  - Respiratory failure [Recovering/Resolving]
  - Lung infiltration [Recovering/Resolving]
  - Hypersensitivity [Unknown]
  - Feeling abnormal [Unknown]
  - Autoimmune disorder [Unknown]
  - Pleural effusion [Recovering/Resolving]

NARRATIVE: CASE EVENT DATE: 201912
